FAERS Safety Report 23095362 (Version 1)
Quarter: 2023Q4

REPORT INFORMATION
  Report Type: Spontaneous
  Country: US (occurrence: None)
  Receive Date: 20231023
  Receipt Date: 20231023
  Transmission Date: 20240110
  Serious: Yes (Other)
  Sender: FDA-Public Use
  Company Number: US-ENDO-CASE-0033305

PATIENT
  Sex: Female

DRUGS (1)
  1. PERCOCET [Suspect]
     Active Substance: ACETAMINOPHEN\OXYCODONE HYDROCHLORIDE

REACTIONS (14)
  - Drug withdrawal syndrome neonatal [Unknown]
  - Hearing disability [Unknown]
  - Asthma [Unknown]
  - Developmental delay [Unknown]
  - Depression [Unknown]
  - Dependence [Unknown]
  - Foetal exposure during pregnancy [Unknown]
  - Dysphagia [Unknown]
  - Gastrointestinal disorder [Unknown]
  - Gastrooesophageal reflux disease [Unknown]
  - Visual impairment [Unknown]
  - Gait disturbance [Unknown]
  - Learning disorder [Unknown]
  - Disturbance in attention [Unknown]
